FAERS Safety Report 6684864-7 (Version None)
Quarter: 2010Q2

REPORT INFORMATION
  Report Type: 
  Country: None (occurrence: None)
  Receive Date: 20100416
  Receipt Date: 20100412
  Transmission Date: 20101027
  Serious: Yes (Death)
  Sender: FDA-Public Use
  Company Number: US-MERCK-0704USA02515

PATIENT
  Age: 81 Year
  Sex: Male

DRUGS (2)
  1. JANUVIA [Suspect]
     Indication: TYPE 2 DIABETES MELLITUS
     Route: 048
     Dates: start: 20070224
  2. AMARYL [Concomitant]
     Route: 065

REACTIONS (3)
  - ARTERIAL DISORDER [None]
  - BLOOD GLUCOSE FLUCTUATION [None]
  - CARDIAC DISORDER [None]
